FAERS Safety Report 9524178 (Version 1)
Quarter: 2013Q1

REPORT INFORMATION
  Report Type: Spontaneous
  Country: US (occurrence: None)
  Receive Date: 20130305
  Receipt Date: 20130305
  Transmission Date: 20140127
  Serious: Yes (Other)
  Sender: FDA-Public Use
  Company Number: 163-21880-12020755

PATIENT
  Age: 80 Year
  Sex: Male
  Weight: 76.3 kg

DRUGS (8)
  1. REVLIMID [Suspect]
     Indication: MYELODYSPLASTIC SYNDROME
     Dosage: 10 MG, DAILY, PO
     Route: 048
     Dates: start: 201112
  2. METOPROLOL (METOPROLOL) (UNKNOWN) [Concomitant]
  3. ASA (ACETYLSALICYLIC ACID) (UNKNOWN) [Concomitant]
  4. SIMVASTATIN (SIMVASTATIN) (UNKNOWN)) [Concomitant]
  5. LUTEIN (XANTOFYL) (UNKNOWN) [Concomitant]
  6. NAPROSYN (NAPROXEN) (UNKNOWN)? [Concomitant]
  7. PROCRIT [Concomitant]
  8. MULTIVITAMINS (MULTIVITAMINS) (UNKNOWN) [Concomitant]

REACTIONS (3)
  - Asthenia [None]
  - Fatigue [None]
  - Influenza [None]
